FAERS Safety Report 11761853 (Version 1)
Quarter: 2015Q4

REPORT INFORMATION
  Report Type: Spontaneous
  Country: US (occurrence: US)
  Receive Date: 20151120
  Receipt Date: 20151120
  Transmission Date: 20160304
  Serious: No
  Sender: FDA-Public Use
  Company Number: US-ELI_LILLY_AND_COMPANY-US201301004054

PATIENT
  Sex: Female

DRUGS (1)
  1. FORTEO [Suspect]
     Active Substance: TERIPARATIDE
     Indication: SENILE OSTEOPOROSIS
     Dosage: 20 UG, QD
     Route: 065
     Dates: start: 201201

REACTIONS (6)
  - Spinal compression fracture [Not Recovered/Not Resolved]
  - Dyspnoea [Unknown]
  - Bone disorder [Unknown]
  - Musculoskeletal disorder [Unknown]
  - Fall [Unknown]
  - Fatigue [Unknown]
